FAERS Safety Report 8298653-3 (Version None)
Quarter: 2012Q2

REPORT INFORMATION
  Report Type: 
  Country: None (occurrence: None)
  Receive Date: 20120419
  Receipt Date: 20120410
  Transmission Date: 20120825
  Serious: Yes (Hospitalization)
  Sender: FDA-Public Use
  Company Number: BR-ASTRAZENECA-2012SE23589

PATIENT
  Age: 53 Year
  Sex: Female
  Weight: 64 kg

DRUGS (3)
  1. ATACAND [Suspect]
     Route: 048
     Dates: start: 20080101, end: 20080101
  2. ATACAND HCT [Suspect]
     Indication: HYPERTENSION
     Dosage: 16/12.5 MG, ONCE DAILY
     Route: 048
     Dates: start: 20080101
  3. ATACAND [Suspect]
     Indication: HYPERTENSION
     Route: 048
     Dates: start: 20050101, end: 20080101

REACTIONS (4)
  - HYPERTENSION [None]
  - BLOOD PRESSURE INCREASED [None]
  - BREAST MASS [None]
  - DRUG INEFFECTIVE [None]
